FAERS Safety Report 25252224 (Version 1)
Quarter: 2025Q2

REPORT INFORMATION
  Report Type: Spontaneous
  Country: US (occurrence: US)
  Receive Date: 20250429
  Receipt Date: 20250429
  Transmission Date: 20250716
  Serious: No
  Sender: INTRABIO
  Company Number: US-IBO-202500020

PATIENT
  Age: 76 Year
  Sex: Male
  Weight: 81 kg

DRUGS (1)
  1. AQNEURSA [Suspect]
     Active Substance: ACETYLLEUCINE, L-
     Indication: Cerebellar ataxia
     Route: 065

REACTIONS (1)
  - Off label use [Unknown]
